FAERS Safety Report 8230056-X (Version None)
Quarter: 2012Q1

REPORT INFORMATION
  Report Type: 
  Country: None (occurrence: None)
  Receive Date: 20120323
  Receipt Date: 20120316
  Transmission Date: 20120608
  Serious: No
  Sender: FDA-Public Use
  Company Number: US-PFIZER INC-2012036299

PATIENT
  Sex: Female
  Weight: 63.492 kg

DRUGS (6)
  1. LEXAPRO [Concomitant]
     Indication: ANXIETY
     Dosage: 20 MG, UNK
  2. CELEBREX [Suspect]
     Indication: OSTEOARTHRITIS
     Dosage: 200 MG, 2X/DAY
     Route: 048
     Dates: start: 20120209
  3. ACETYLSALICYLIC ACID [Concomitant]
     Dosage: UNK
  4. CHONDROITIN/GLUCOSAMINE [Concomitant]
     Indication: ARTHROPATHY
     Dosage: UNK
  5. MULTI-VITAMINS [Concomitant]
     Dosage: UNK
  6. CALCIUM CARBONATE [Concomitant]
     Indication: MINERAL SUPPLEMENTATION
     Dosage: UNK

REACTIONS (4)
  - PAIN IN EXTREMITY [None]
  - CHEST PAIN [None]
  - ARTHROPATHY [None]
  - HYPERCHLORHYDRIA [None]
